FAERS Safety Report 19245152 (Version 3)
Quarter: 2021Q2

REPORT INFORMATION
  Report Type: Report from Study
  Country: US (occurrence: US)
  Receive Date: 20210511
  Receipt Date: 20210602
  Transmission Date: 20210717
  Serious: Yes (Hospitalization, Other)
  Sender: FDA-Public Use
  Company Number: US-BRISTOL-MYERS SQUIBB COMPANY-BMS-2021-043188

PATIENT
  Age: 68 Year
  Sex: Female
  Weight: 84.35 kg

DRUGS (18)
  1. PRAVACHOL [Concomitant]
     Active Substance: PRAVASTATIN SODIUM
     Indication: PRODUCT USED FOR UNKNOWN INDICATION
     Dosage: 40 MILLIGRAM
     Route: 065
  2. K?PHOS [Concomitant]
     Active Substance: POTASSIUM PHOSPHATE, MONOBASIC
     Indication: PRODUCT USED FOR UNKNOWN INDICATION
     Dosage: 40 MEQ
     Route: 042
     Dates: start: 20210511
  3. PERCOCET [Concomitant]
     Active Substance: ACETAMINOPHEN\OXYCODONE HYDROCHLORIDE
     Indication: PRODUCT USED FOR UNKNOWN INDICATION
     Dosage: 5?325 MG PER TABLET
     Route: 065
  4. METHYLPREDNISOLONE. [Concomitant]
     Active Substance: METHYLPREDNISOLONE
     Indication: PRODUCT USED FOR UNKNOWN INDICATION
     Dosage: 250 MILLIGRAM, Q6H
     Route: 042
     Dates: start: 20210506
  5. COMPAZINE [Concomitant]
     Active Substance: PROCHLORPERAZINE MALEATE
     Indication: PRODUCT USED FOR UNKNOWN INDICATION
     Dosage: 10 MILLIGRAM
     Route: 065
  6. CARBOPLATIN. [Suspect]
     Active Substance: CARBOPLATIN
     Indication: TRIPLE NEGATIVE BREAST CANCER
     Dosage: 1 DOSAGE FORM, Q3WK
     Route: 042
     Dates: start: 20210326
  7. LIDOCAINE. [Concomitant]
     Active Substance: LIDOCAINE
     Indication: PRODUCT USED FOR UNKNOWN INDICATION
     Dosage: 2 PERCENT
     Route: 065
  8. EMLA [Concomitant]
     Active Substance: LIDOCAINE\PRILOCAINE
     Indication: PRODUCT USED FOR UNKNOWN INDICATION
     Dosage: UNK
     Route: 065
  9. NIVOLUMAB [Suspect]
     Active Substance: NIVOLUMAB
     Indication: TRIPLE NEGATIVE BREAST CANCER
     Dosage: 240 MILLIGRAM, Q2WK
     Route: 042
     Dates: start: 20210326
  10. CABIRALIZUMAB [Suspect]
     Active Substance: CABIRALIZUMAB
     Indication: TRIPLE NEGATIVE BREAST CANCER
     Dosage: 4 MILLIGRAM/KILOGRAM, Q2WK
     Route: 042
     Dates: start: 20210326
  11. SYNTHROID [Concomitant]
     Active Substance: LEVOTHYROXINE SODIUM
     Indication: PRODUCT USED FOR UNKNOWN INDICATION
     Dosage: 50 MICROGRAM
     Route: 065
  12. METHYLPREDNISOLONE. [Concomitant]
     Active Substance: METHYLPREDNISOLONE
     Dosage: 500 MILLIGRAM, BID
     Route: 042
     Dates: start: 20210508
  13. PACLITAXEL. [Suspect]
     Active Substance: PACLITAXEL
     Indication: TRIPLE NEGATIVE BREAST CANCER
     Dosage: 80 MILLIGRAM/SQ. METER, QWK
     Route: 042
     Dates: start: 20210326
  14. ASPIRIN [ACETYLSALICYLIC ACID] [Concomitant]
     Active Substance: ASPIRIN
     Indication: PRODUCT USED FOR UNKNOWN INDICATION
     Dosage: 325 MILLIGRAM
     Route: 065
  15. DECADRON [Concomitant]
     Active Substance: DEXAMETHASONE
     Indication: PRODUCT USED FOR UNKNOWN INDICATION
     Dosage: 4 MILLIGRAM
     Route: 065
  16. ZOFRAN [Concomitant]
     Active Substance: ONDANSETRON HYDROCHLORIDE
     Indication: PRODUCT USED FOR UNKNOWN INDICATION
     Dosage: 8 MILLIGRAM
     Route: 065
  17. LOVENOX [Concomitant]
     Active Substance: ENOXAPARIN SODIUM
     Indication: DEEP VEIN THROMBOSIS
     Dosage: UNK
     Route: 065
     Dates: start: 20210511, end: 20210513
  18. MAGIC MOUTHWASH [Concomitant]
     Active Substance: DIPHENHYDRAMINE HYDROCHLORIDE\LIDOCAINE HYDROCHLORIDE\NYSTATIN
     Indication: PRODUCT USED FOR UNKNOWN INDICATION
     Dosage: UNK
     Route: 065

REACTIONS (4)
  - Myositis [Not Recovered/Not Resolved]
  - Dehydration [Recovered/Resolved]
  - Platelet count decreased [Recovered/Resolved]
  - Embolism [Not Recovered/Not Resolved]

NARRATIVE: CASE EVENT DATE: 20210430
